FAERS Safety Report 9348597 (Version 1)
Quarter: 2013Q2

REPORT INFORMATION
  Report Type: Spontaneous
  Country: RU (occurrence: RU)
  Receive Date: 20130614
  Receipt Date: 20130614
  Transmission Date: 20140414
  Serious: Yes (Life-Threatening)
  Sender: FDA-Public Use
  Company Number: RU-BAYER-2013-073557

PATIENT
  Age: 43 Year
  Sex: Male

DRUGS (1)
  1. ULTRAVIST [Suspect]

REACTIONS (3)
  - Vomiting [Recovered/Resolved]
  - Asphyxia [Recovered/Resolved]
  - Rash [Recovered/Resolved]
